FAERS Safety Report 11536599 (Version 1)
Quarter: 2015Q3

REPORT INFORMATION
  Report Type: Spontaneous
  Country: US (occurrence: None)
  Receive Date: 20150921
  Receipt Date: 20150921
  Transmission Date: 20151125
  Serious: Yes (Disabling)
  Sender: FDA-Public Use
  Company Number: None

PATIENT
  Age: 45 Year
  Sex: Male
  Weight: 77.11 kg

DRUGS (1)
  1. LISINOPRIL. [Suspect]
     Active Substance: LISINOPRIL
     Indication: HYPERTENSION
     Dosage: 1
     Route: 048
     Dates: start: 20150827, end: 20150917

REACTIONS (4)
  - Throat irritation [None]
  - Insomnia [None]
  - Cough [None]
  - Hypersensitivity [None]

NARRATIVE: CASE EVENT DATE: 20150827
